FAERS Safety Report 5211566-6 (Version None)
Quarter: 2007Q1

REPORT INFORMATION
  Report Type: 
  Country: None (occurrence: None)
  Receive Date: 20070117
  Receipt Date: 20070117
  Transmission Date: 20070707
  Serious: Yes (Life-Threatening, Hospitalization)
  Sender: FDA-Public Use
  Company Number: None

PATIENT
  Age: 53 Year
  Sex: Female

DRUGS (9)
  1. ZELNORM [Suspect]
  2. PREMARIN [Concomitant]
  3. ALTACE [Concomitant]
  4. SYNTHROID [Concomitant]
  5. ACIPHEX [Concomitant]
  6. MS CONTIN [Concomitant]
  7. NUBAIN [Concomitant]
  8. LUNESTA [Concomitant]
  9. CELEBREX [Concomitant]

REACTIONS (2)
  - COLITIS ISCHAEMIC [None]
  - SHOCK [None]
